FAERS Safety Report 4320974-7 (Version None)
Quarter: 2004Q1

REPORT INFORMATION
  Report Type: 
  Country: None (occurrence: None)
  Receive Date: 20040322
  Receipt Date: 20040322
  Transmission Date: 20041129
  Serious: Yes (Hospitalization, Disabling)
  Sender: FDA-Public Use
  Company Number: None

PATIENT
  Age: 89 Year
  Sex: Female
  Weight: 44.4525 kg

DRUGS (2)
  1. PAXIL [Suspect]
     Indication: DEPRESSION
     Dosage: 10 MG DAILY ORAL
     Route: 048
     Dates: start: 20040206, end: 20040209
  2. PAXIL [Suspect]
     Indication: INCREASED APPETITE
     Dosage: 10 MG DAILY ORAL
     Route: 048
     Dates: start: 20040206, end: 20040209

REACTIONS (8)
  - ACTIVITIES OF DAILY LIVING IMPAIRED [None]
  - BLINDNESS [None]
  - DELIRIUM [None]
  - DISORIENTATION [None]
  - HALLUCINATION [None]
  - MEMORY IMPAIRMENT [None]
  - MENTAL STATUS CHANGES [None]
  - VISION BLURRED [None]
